FAERS Safety Report 19026537 (Version 1)
Quarter: 2021Q1

REPORT INFORMATION
  Report Type: Spontaneous
  Country: IN (occurrence: IN)
  Receive Date: 20210318
  Receipt Date: 20210318
  Transmission Date: 20210420
  Serious: Yes (Other)
  Sender: FDA-Public Use
  Company Number: IN-PFIZER INC-2021247339

PATIENT
  Age: 68 Year
  Sex: Male

DRUGS (7)
  1. SUTENT [Suspect]
     Active Substance: SUNITINIB MALATE
     Dosage: 50MG, CYCLIC(OD, 2 WEEKS ON AND 2 WEEKS OFF)
     Dates: start: 20210125
  2. SUTENT [Suspect]
     Active Substance: SUNITINIB MALATE
     Indication: METASTATIC RENAL CELL CARCINOMA
     Dosage: 50 MG, CYCLIC(4 WEEKS ON AND 2 WEEKS OFF)
     Dates: start: 20210107
  3. MUCAINE [ALUMINIUM HYDROXIDE GEL;MAGNESIUM HYDROXIDE;OXETACAINE] [Concomitant]
     Dosage: 2/5P, 3X/DAY(V?V?V)
  4. SUTENT [Suspect]
     Active Substance: SUNITINIB MALATE
     Dosage: 50 MG, 1X/DAY
     Route: 048
     Dates: start: 20210115
  5. SALT [Concomitant]
     Active Substance: SODIUM CHLORIDE
     Dosage: 5 G, 2X/DAY
  6. SUTENT [Suspect]
     Active Substance: SUNITINIB MALATE
     Dosage: 50MG, CYCLIC(OD, 1 WEEK ON AND 1 WEEK OFF)
     Dates: start: 20210225
  7. SUTENT [Suspect]
     Active Substance: SUNITINIB MALATE
     Dosage: 50 MG, CYCLIC(4 WEEKS ON AND 2 WEEKS OFF)
     Dates: start: 20210114

REACTIONS (4)
  - Venous injury [Unknown]
  - Off label use [Unknown]
  - Dry skin [Unknown]
  - Platelet count decreased [Unknown]

NARRATIVE: CASE EVENT DATE: 20210125
